FAERS Safety Report 7075349-7 (Version None)
Quarter: 2010Q4

REPORT INFORMATION
  Report Type: 
  Country: None (occurrence: None)
  Receive Date: 20101030
  Receipt Date: 20100818
  Transmission Date: 20110411
  Serious: No
  Sender: FDA-Public Use
  Company Number: US-WYE-H16801110

PATIENT
  Age: 75 Year
  Sex: Male
  Weight: 95.34 kg

DRUGS (2)
  1. ALAVERT D-12 [Suspect]
     Indication: HYPERSENSITIVITY
     Dosage: 1 TABLET EVERY 1 TOT
     Route: 048
     Dates: start: 20100809, end: 20100809
  2. LIPITOR [Concomitant]

REACTIONS (3)
  - ASTHENIA [None]
  - DRUG INEFFECTIVE [None]
  - SOMNOLENCE [None]
